FAERS Safety Report 7067607-7 (Version None)
Quarter: 2010Q4

REPORT INFORMATION
  Report Type: 
  Country: None (occurrence: None)
  Receive Date: 20101028
  Receipt Date: 20101021
  Transmission Date: 20110411
  Serious: Yes (Other)
  Sender: FDA-Public Use
  Company Number: GB-BRISTOL-MYERS SQUIBB COMPANY-15348949

PATIENT
  Age: 62 Year
  Sex: Male
  Weight: 102 kg

DRUGS (5)
  1. IRBESARTAN AND HYDROCHLOROTHIAZIDE [Suspect]
     Dosage: 1 D.F:1TAB
  2. GLICLAZIDE [Concomitant]
     Dosage: 80 MG TABS
  3. METFORMIN HCL [Concomitant]
  4. WARFARIN SODIUM [Concomitant]
  5. BISOPROLOL FUMARATE [Concomitant]
     Dosage: TABS

REACTIONS (14)
  - ALANINE AMINOTRANSFERASE INCREASED [None]
  - ARTHRALGIA [None]
  - ASPARTATE AMINOTRANSFERASE INCREASED [None]
  - BLOOD CREATINE PHOSPHOKINASE INCREASED [None]
  - BLOOD POTASSIUM INCREASED [None]
  - DIABETES MELLITUS [None]
  - DRY MOUTH [None]
  - FATIGUE [None]
  - GAMMA-GLUTAMYLTRANSFERASE INCREASED [None]
  - HYPOTENSION [None]
  - MUSCLE FATIGUE [None]
  - MUSCULOSKELETAL PAIN [None]
  - SOMNOLENCE [None]
  - VISION BLURRED [None]
